FAERS Safety Report 7058285-1 (Version None)
Quarter: 2010Q4

REPORT INFORMATION
  Report Type: 
  Country: None (occurrence: None)
  Receive Date: 20101022
  Receipt Date: 20101013
  Transmission Date: 20110411
  Serious: Yes (Hospitalization)
  Sender: FDA-Public Use
  Company Number: TN-ABBOTT-10P-160-0677800-00

PATIENT
  Age: 45 Year
  Sex: Male

DRUGS (3)
  1. CYCLOSPORINE [Suspect]
     Indication: BEHCET'S SYNDROME
  2. CYCLOSPORINE [Suspect]
  3. COLCHICINE [Concomitant]
     Indication: BEHCET'S SYNDROME

REACTIONS (1)
  - CEREBROVASCULAR DISORDER [None]
